FAERS Safety Report 9125268 (Version 2)
Quarter: 2013Q2

REPORT INFORMATION
  Report Type: Report from Study
  Country: US (occurrence: US)
  Receive Date: 20130227
  Receipt Date: 20130624
  Transmission Date: 20140414
  Serious: Yes (Hospitalization)
  Sender: FDA-Public Use
  Company Number: US-JNJFOC-20130210874

PATIENT
  Age: 22 Year
  Sex: Male
  Weight: 70 kg

DRUGS (3)
  1. APAP [Suspect]
     Route: 048
  2. APAP [Suspect]
     Indication: SELF INJURIOUS BEHAVIOUR
     Route: 048
  3. ETHANOL [Suspect]
     Indication: SELF INJURIOUS BEHAVIOUR
     Route: 048

REACTIONS (5)
  - Intentional overdose [Recovered/Resolved]
  - Alcohol poisoning [Recovered/Resolved]
  - Intentional self-injury [Recovered/Resolved]
  - Aspartate aminotransferase increased [Recovered/Resolved]
  - Alanine aminotransferase increased [Recovered/Resolved]
